FAERS Safety Report 19771251 (Version 1)
Quarter: 2021Q3

REPORT INFORMATION
  Report Type: Spontaneous
  Country: CH (occurrence: CH)
  Receive Date: 20210901
  Receipt Date: 20210901
  Transmission Date: 20211014
  Serious: Yes (Other)
  Sender: FDA-Public Use
  Company Number: CH-SLATE RUN PHARMACEUTICALS-21CH000652

PATIENT

DRUGS (6)
  1. SULFADIAZINE. [Suspect]
     Active Substance: SULFADIAZINE
     Indication: TOXOPLASMOSIS
     Dosage: 4 GRAM, QD
  2. FOLINIC ACID [Concomitant]
     Active Substance: LEUCOVORIN
     Indication: TOXOPLASMOSIS
  3. PYRIMETHAMINE [Suspect]
     Active Substance: PYRIMETHAMINE
     Indication: TOXOPLASMOSIS
     Dosage: 25 MILLIGRAM, QD
  4. AZITHROMYCIN USP [Suspect]
     Active Substance: AZITHROMYCIN
     Indication: PNEUMONIA
     Dosage: 500 MILLIGRAM, QD
  5. CEFTRIAXONE. [Concomitant]
     Active Substance: CEFTRIAXONE
     Indication: PNEUMONIA
  6. CO?AMOXICILLIN [Concomitant]
     Active Substance: AMOXICILLIN\CLAVULANATE POTASSIUM
     Indication: PNEUMONIA
     Dosage: 2.2 GRAM, TID

REACTIONS (7)
  - Off label use [Recovered/Resolved]
  - Mitral valve incompetence [Recovered/Resolved]
  - Pneumonia [Recovered/Resolved]
  - Oxygen saturation decreased [Recovered/Resolved]
  - Drug ineffective [Recovered/Resolved]
  - Hypersensitivity pneumonitis [Recovered/Resolved]
  - Exposure during pregnancy [Recovered/Resolved]
